FAERS Safety Report 7533504-3 (Version None)
Quarter: 2011Q2

REPORT INFORMATION
  Report Type: 
  Country: None (occurrence: None)
  Receive Date: 20110608
  Receipt Date: 20060202
  Transmission Date: 20111010
  Serious: Yes (Other)
  Sender: FDA-Public Use
  Company Number: PHHO2006JP02148

PATIENT
  Sex: Male
  Weight: 69 kg

DRUGS (8)
  1. PRERAN [Concomitant]
     Indication: HYPERTENSION
     Dosage: 1 MG, UNK
     Route: 048
     Dates: start: 20000404
  2. ALLOPURINOL [Concomitant]
     Indication: HYPERURICAEMIA
     Dates: start: 20000404
  3. DOXAZOSIN MESYLATE [Concomitant]
     Indication: HYPERTENSION
     Dosage: 8 MG, UNK
     Route: 048
     Dates: start: 20000509
  4. ADALAT [Concomitant]
     Indication: HYPERTENSION
     Dosage: 40 MG, UNK
     Route: 048
     Dates: start: 20000425
  5. SIMVASTATIN [Concomitant]
     Indication: HYPERLIPIDAEMIA
     Dosage: 5 MG, UNK
     Route: 048
  6. DIOVAN [Suspect]
     Dosage: 80 MG, QD
     Route: 048
     Dates: start: 20021212
  7. PERSANTIN [Concomitant]
     Indication: GLOMERULONEPHRITIS CHRONIC
     Dosage: 300 MG, UNK
     Route: 048
     Dates: start: 20001225
  8. KREMEZIN [Concomitant]
     Indication: RENAL FAILURE CHRONIC
     Dosage: 6 G, UNK
     Route: 048
     Dates: start: 20010913

REACTIONS (1)
  - RENAL IMPAIRMENT [None]
